FAERS Safety Report 7544556-9 (Version None)
Quarter: 2011Q2

REPORT INFORMATION
  Report Type: 
  Country: None (occurrence: None)
  Receive Date: 20110613
  Receipt Date: 20110606
  Transmission Date: 20111010
  Serious: Yes (Death)
  Sender: FDA-Public Use
  Company Number: US-CELGENEUS-163-21880-11060956

PATIENT
  Sex: Female
  Weight: 65 kg

DRUGS (8)
  1. IMODIUM [Concomitant]
     Route: 065
  2. PRAVACHOL [Concomitant]
     Route: 065
  3. FISH OIL [Concomitant]
     Route: 065
  4. AMBIEN [Concomitant]
     Route: 065
  5. CALCIUM CARBONATE [Concomitant]
     Route: 065
  6. MIRALAX [Concomitant]
     Route: 065
  7. REVLIMID [Suspect]
     Dosage: 15 MILLIGRAM
     Route: 048
     Dates: start: 20091101, end: 20110310
  8. VITAMIN D [Concomitant]
     Route: 065

REACTIONS (2)
  - DISEASE PROGRESSION [None]
  - DEATH [None]
